FAERS Safety Report 25155870 (Version 4)
Quarter: 2025Q2

REPORT INFORMATION
  Report Type: Spontaneous
  Country: US (occurrence: US)
  Receive Date: 20250403
  Receipt Date: 20250515
  Transmission Date: 20250716
  Serious: No
  Sender: PFIZER
  Company Number: US-PFIZER INC-202500068585

PATIENT
  Age: 8 Year
  Sex: Female
  Weight: 17.24 kg

DRUGS (2)
  1. GENOTROPIN [Suspect]
     Active Substance: SOMATROPIN
     Indication: Short stature
     Dosage: 0.5 MG, DAILY
  2. GENOTROPIN [Suspect]
     Active Substance: SOMATROPIN
     Indication: Growth retardation
     Dosage: 0.8 MG AND IT WAS INJECTED ONCE DAILY
     Dates: start: 2024

REACTIONS (4)
  - Device leakage [Unknown]
  - Device information output issue [Unknown]
  - Device physical property issue [Unknown]
  - Drug dose omission by device [Unknown]
